FAERS Safety Report 9290398 (Version 1)
Quarter: 2013Q2

REPORT INFORMATION
  Report Type: Spontaneous
  Country: US (occurrence: US)
  Receive Date: 20130515
  Receipt Date: 20130515
  Transmission Date: 20140414
  Serious: No
  Sender: FDA-Public Use
  Company Number: US-PFIZER INC-2013148062

PATIENT
  Age: 47 Year
  Sex: Male

DRUGS (9)
  1. XELJANZ [Suspect]
     Dosage: 5 MG, 1X/DAY
     Route: 048
     Dates: start: 20130506
  2. XELJANZ [Suspect]
     Dosage: 5 MG, 1X/DAY
     Route: 048
  3. FLOVENT [Concomitant]
     Dosage: 250 UG, UNK
  4. FLONASE [Concomitant]
     Dosage: 0.05 %, UNK
  5. ALLEGRA [Concomitant]
     Dosage: 180 MG, UNK
  6. BYSTOLIC [Concomitant]
     Dosage: 2.5 MG, UNK
  7. ALEVE [Concomitant]
     Dosage: 220 MG, UNK
  8. LEFLUNOMIDE [Concomitant]
     Dosage: 10 MG, UNK
  9. PREDNISONE [Concomitant]
     Dosage: 1 MG, UNK

REACTIONS (1)
  - Arthralgia [Unknown]
